FAERS Safety Report 5128614-4 (Version None)
Quarter: 2006Q4

REPORT INFORMATION
  Report Type: 
  Country: None (occurrence: None)
  Receive Date: 20061011
  Receipt Date: 20060929
  Transmission Date: 20070319
  Serious: Yes (Hospitalization, Other)
  Sender: FDA-Public Use
  Company Number: 163-C5013-06030341

PATIENT
  Sex: Female
  Weight: 59.4 kg

DRUGS (5)
  1. CC-5013 (CAPSULE) REVLIMID [Suspect]
     Indication: MULTIPLE MYELOMA
     Dosage: SEE IMAGE, ORAL
     Route: 047
     Dates: start: 20051208, end: 20051213
  2. DEXAMETHASONE TAB [Suspect]
     Indication: MULTIPLE MYELOMA
     Dosage: 40 MG QD, DAYS 1-4-, 9-12, 17-20, Q28D, ORAL
     Route: 048
     Dates: start: 20051208, end: 20051211
  3. ZITHROMAX [Suspect]
     Indication: DRUG USE FOR UNKNOWN INDICATION
  4. ASPIRIN [Concomitant]
  5. PAMIDRONATE DISODIUM [Concomitant]

REACTIONS (32)
  - ANOREXIA [None]
  - ASTHENIA [None]
  - ATELECTASIS [None]
  - BACK PAIN [None]
  - BONE PAIN [None]
  - CEREBRAL ISCHAEMIA [None]
  - CHEST PAIN [None]
  - DEEP VEIN THROMBOSIS [None]
  - DEPRESSION [None]
  - DIZZINESS [None]
  - EMBOLISM [None]
  - FAILURE TO THRIVE [None]
  - FATIGUE [None]
  - HYPOALBUMINAEMIA [None]
  - HYPOCALCAEMIA [None]
  - HYPOKALAEMIA [None]
  - HYPOMAGNESAEMIA [None]
  - HYPONATRAEMIA [None]
  - HYPOPHOSPHATAEMIA [None]
  - INTERNATIONAL NORMALISED RATIO INCREASED [None]
  - MALNUTRITION [None]
  - MULTIPLE FRACTURES [None]
  - MYOPATHY STEROID [None]
  - PLEURAL EFFUSION [None]
  - PNEUMONIA [None]
  - PULMONARY EMBOLISM [None]
  - PULMONARY INFARCTION [None]
  - RASH [None]
  - SINUS TACHYCARDIA [None]
  - THROMBOSIS [None]
  - VISION BLURRED [None]
  - WEIGHT DECREASED [None]
